FAERS Safety Report 5126215-5 (Version None)
Quarter: 2006Q4

REPORT INFORMATION
  Report Type: 
  Country: None (occurrence: None)
  Receive Date: 20061012
  Receipt Date: 20060824
  Transmission Date: 20070319
  Serious: Yes (Hospitalization)
  Sender: FDA-Public Use
  Company Number: US-BOEHRINGER INGELHEIM PHARMACEUTICALS, INC.-2006-BP-09850BP

PATIENT
  Age: 55 Year
  Sex: Male

DRUGS (1)
  1. SPIRIVA [Suspect]
     Route: 055
     Dates: start: 20050601

REACTIONS (2)
  - CAROTID ARTERY OCCLUSION [None]
  - HYPERTENSION [None]
